FAERS Safety Report 5023166-1 (Version None)
Quarter: 2006Q2

REPORT INFORMATION
  Report Type: 
  Country: None (occurrence: None)
  Receive Date: 20060612
  Receipt Date: 20060605
  Transmission Date: 20061013
  Serious: Yes (Other)
  Sender: FDA-Public Use
  Company Number: US-JNJFOC-20060601365

PATIENT
  Sex: Male

DRUGS (3)
  1. FENTANYL TRANSDERMAL SYSTEM [Suspect]
     Indication: PAIN
     Route: 062
  2. SULFASALAZINE [Concomitant]
     Route: 048
  3. ETODOLAC [Concomitant]
     Indication: PAIN
     Route: 048

REACTIONS (3)
  - DRUG INEFFECTIVE [None]
  - LYMPHOMA [None]
  - RASH [None]
